FAERS Safety Report 16056154 (Version 1)
Quarter: 2019Q1

REPORT INFORMATION
  Report Type: Spontaneous
  Country: NL (occurrence: NL)
  Receive Date: 20190311
  Receipt Date: 20190311
  Transmission Date: 20190418
  Serious: Yes (Hospitalization, Other)
  Sender: FDA-Public Use
  Company Number: NL-009507513-1902NLD011977

PATIENT
  Age: 55 Year
  Sex: Male
  Weight: 55 kg

DRUGS (1)
  1. PEMBROLIZUMAB. [Suspect]
     Active Substance: PEMBROLIZUMAB
     Indication: MALIGNANT MELANOMA
     Dosage: 2 MG/KG
     Route: 042
     Dates: start: 20180425, end: 20180920

REACTIONS (2)
  - Guillain-Barre syndrome [Recovering/Resolving]
  - Cachexia [Unknown]

NARRATIVE: CASE EVENT DATE: 2018
